FAERS Safety Report 10200481 (Version 2)
Quarter: 2014Q3

REPORT INFORMATION
  Report Type: Spontaneous
  Country: JP (occurrence: JP)
  Receive Date: 20140528
  Receipt Date: 20140721
  Transmission Date: 20150326
  Serious: Yes (Hospitalization)
  Sender: FDA-Public Use
  Company Number: JP-009507513-1405JPN013278

PATIENT
  Age: 59 Year
  Sex: Male
  Weight: 52 kg

DRUGS (13)
  1. SIMEPREVIR [Suspect]
     Active Substance: SIMEPREVIR
     Indication: CHRONIC HEPATITIS C
     Dosage: 100 MG, QD
     Route: 048
     Dates: start: 20140312, end: 20140313
  2. BLOPRESS [Concomitant]
     Active Substance: CANDESARTAN CILEXETIL
     Dosage: DAILY DOSAGE UNKNOWN
     Route: 048
     Dates: end: 20140313
  3. EPADEL S [Concomitant]
     Active Substance: ETHYL ICOSAPENTATE\ICOSAPENT
     Dosage: DAILY DOSAGE UNKNOWN
     Route: 048
     Dates: end: 20140313
  4. ACETAMINOPHEN. [Concomitant]
     Active Substance: ACETAMINOPHEN
     Dosage: DAILY DOSAGE UNKNOWN, POR
     Route: 048
     Dates: end: 20140313
  5. PEGINTRON [Suspect]
     Active Substance: PEGINTERFERON ALFA-2B
     Indication: CHRONIC HEPATITIS C
     Dosage: 80 MICROGRAM, QD
     Route: 058
     Dates: start: 20140312, end: 20140312
  6. ASPARA K [Concomitant]
     Active Substance: POTASSIUM ASPARTATE
     Dosage: DAILY DOSAGE UNKNOWN
     Route: 048
     Dates: end: 20140313
  7. REBETOL [Suspect]
     Active Substance: RIBAVIRIN
     Indication: CHRONIC HEPATITIS C
     Dosage: 200MG IN THE MORNING, 400MG IN THE EVENING
     Route: 048
     Dates: start: 20140312, end: 20140313
  8. MYSLEE [Concomitant]
     Active Substance: ZOLPIDEM TARTRATE
     Dosage: DAILY DOSE UNKNOWN
     Route: 048
     Dates: end: 20140313
  9. BAYER ASPIRIN [Concomitant]
     Active Substance: ASPIRIN
     Dosage: DAILY DOSE UNKNOWN
     Route: 048
  10. LIVALO [Concomitant]
     Active Substance: PITAVASTATIN CALCIUM
     Dosage: DAILY DOSAGE UNKNOWN
     Route: 048
     Dates: end: 20140313
  11. MAINTATE [Concomitant]
     Active Substance: BISOPROLOL FUMARATE
     Dosage: DAILY DOSAGE UNKNOWN
     Route: 048
     Dates: end: 20140313
  12. PARIET [Concomitant]
     Active Substance: RABEPRAZOLE SODIUM
     Dosage: DAILY DOSAGE UNKNOWN
     Route: 048
     Dates: end: 20140313
  13. MAGMITT [Concomitant]
     Active Substance: MAGNESIUM OXIDE
     Dosage: DAILY DOSAGE UNKNOWN, POR
     Route: 048
     Dates: end: 20140313

REACTIONS (3)
  - Anaphylactic shock [Recovering/Resolving]
  - Pyrexia [Recovering/Resolving]
  - Blood pressure decreased [Recovering/Resolving]

NARRATIVE: CASE EVENT DATE: 20140313
